FAERS Safety Report 19581448 (Version 3)
Quarter: 2021Q3

REPORT INFORMATION
  Report Type: Report from Study
  Country: None (occurrence: CH)
  Receive Date: 20210720
  Receipt Date: 20210811
  Transmission Date: 20211014
  Serious: Yes (Hospitalization)
  Sender: FDA-Public Use
  Company Number: CH-ABBVIE-21K-151-3975467-00

PATIENT
  Age: 68 Year
  Sex: Female

DRUGS (3)
  1. DUODOPA [Suspect]
     Active Substance: CARBIDOPA\LEVODOPA
     Dosage: MD: 6 ML, CRD: 4 ML/H, CRN: 4 ML/H, ED: 1 ML?24 H THERAPY
     Route: 050
     Dates: start: 20210317
  2. MADOPAR [Concomitant]
     Active Substance: BENSERAZIDE HYDROCHLORIDE\LEVODOPA
     Indication: PRODUCT USED FOR UNKNOWN INDICATION
  3. DUODOPA [Suspect]
     Active Substance: CARBIDOPA\LEVODOPA
     Indication: PARKINSON^S DISEASE
     Route: 050
     Dates: start: 20190121

REACTIONS (8)
  - Device occlusion [Recovered/Resolved]
  - Mobility decreased [Not Recovered/Not Resolved]
  - Device leakage [Recovered/Resolved]
  - Device physical property issue [Recovered/Resolved]
  - Device issue [Recovered/Resolved]
  - Device programming error [Recovered/Resolved]
  - Hallucination [Not Recovered/Not Resolved]
  - Hypersomnia [Not Recovered/Not Resolved]

NARRATIVE: CASE EVENT DATE: 20210715
